FAERS Safety Report 14599667 (Version 12)
Quarter: 2019Q2

REPORT INFORMATION
  Report Type: Spontaneous
  Country: PL (occurrence: PL)
  Receive Date: 20180305
  Receipt Date: 20190514
  Transmission Date: 20190711
  Serious: Yes (Other)
  Sender: FDA-Public Use
  Company Number: PL-ELI_LILLY_AND_COMPANY-PL201802012086

PATIENT
  Age: 57 Year
  Sex: Male
  Weight: 86 kg

DRUGS (26)
  1. MIANSERIN [Interacting]
     Active Substance: MIANSERIN
     Indication: ABNORMAL DREAMS
  2. SIMVASTATIN. [Concomitant]
     Active Substance: SIMVASTATIN
     Indication: PRODUCT USED FOR UNKNOWN INDICATION
     Dosage: UNK UNK, UNKNOWN
     Route: 065
  3. TRAZODONE HYDROCHLORIDE. [Concomitant]
     Active Substance: TRAZODONE HYDROCHLORIDE
     Dosage: 100 MG, EACH EVENING
     Route: 065
  4. DULOXETINE HYDROCHLORIDE. [Concomitant]
     Active Substance: DULOXETINE HYDROCHLORIDE
     Indication: FIBROMYALGIA
     Dosage: 30 MG, UNK
     Route: 065
  5. DIAZEPAM. [Interacting]
     Active Substance: DIAZEPAM
     Indication: NIGHTMARE
  6. DIAZEPAM. [Interacting]
     Active Substance: DIAZEPAM
     Indication: SLEEP DISORDER
  7. ZOLPIDEM [Interacting]
     Active Substance: ZOLPIDEM\ZOLPIDEM TARTRATE
     Indication: INSOMNIA
     Dosage: 10 MG, EACH EVENING
     Route: 048
  8. BISOCARD [Concomitant]
     Active Substance: BISOPROLOL
     Indication: PRODUCT USED FOR UNKNOWN INDICATION
     Dosage: UNK UNK, UNKNOWN
     Route: 065
  9. TRAZODONE HYDROCHLORIDE. [Concomitant]
     Active Substance: TRAZODONE HYDROCHLORIDE
     Indication: INSOMNIA
     Dosage: 75 MG, EACH EVENING
     Route: 065
  10. FLUOXETINE HYDROCHLORIDE. [Interacting]
     Active Substance: FLUOXETINE HYDROCHLORIDE
     Indication: PAIN
  11. DIAZEPAM. [Interacting]
     Active Substance: DIAZEPAM
     Indication: ABNORMAL DREAMS
  12. MIANSERIN [Interacting]
     Active Substance: MIANSERIN
     Indication: NIGHTMARE
  13. METFORMIN [Interacting]
     Active Substance: METFORMIN HYDROCHLORIDE
     Indication: TYPE 2 DIABETES MELLITUS
  14. METFORMIN [Interacting]
     Active Substance: METFORMIN HYDROCHLORIDE
     Indication: BLOOD GLUCOSE FLUCTUATION
  15. ZOLPIDEM [Interacting]
     Active Substance: ZOLPIDEM\ZOLPIDEM TARTRATE
     Indication: FIBROMYALGIA
  16. FLUOXETINE HYDROCHLORIDE. [Suspect]
     Active Substance: FLUOXETINE HYDROCHLORIDE
     Indication: FIBROMYALGIA
     Dosage: 40 MG, BID
     Route: 048
  17. ZOFENIL [Concomitant]
     Active Substance: ZOFENOPRIL
     Indication: PRODUCT USED FOR UNKNOWN INDICATION
     Dosage: UNK UNK, UNKNOWN
     Route: 065
  18. PARACETAMOL [Concomitant]
     Active Substance: ACETAMINOPHEN
     Indication: PRODUCT USED FOR UNKNOWN INDICATION
     Dosage: UNK UNK, UNKNOWN
     Route: 065
  19. ZOLPIDEM [Interacting]
     Active Substance: ZOLPIDEM\ZOLPIDEM TARTRATE
     Indication: SLEEP DISORDER
  20. MIANSERIN [Interacting]
     Active Substance: MIANSERIN
     Indication: INSOMNIA
     Dosage: 20 MG, EACH EVENING
     Route: 048
  21. METFORMIN [Interacting]
     Active Substance: METFORMIN HYDROCHLORIDE
     Indication: INSOMNIA
     Dosage: UNK, UNKNOWN
     Route: 065
  22. DULOXETINE HYDROCHLORIDE. [Concomitant]
     Active Substance: DULOXETINE HYDROCHLORIDE
     Indication: PAIN MANAGEMENT
     Dosage: 120 MG, UNKNOWN
     Route: 065
  23. DIAZEPAM. [Interacting]
     Active Substance: DIAZEPAM
     Indication: INITIAL INSOMNIA
     Dosage: 10 MG, EACH EVENING
     Route: 065
  24. ZOLPIDEM [Interacting]
     Active Substance: ZOLPIDEM\ZOLPIDEM TARTRATE
     Indication: DIABETES MELLITUS
  25. DEPREXETIN [Interacting]
     Active Substance: FLUOXETINE HYDROCHLORIDE
     Indication: FIBROMYALGIA
     Dosage: 20 MG, BID
     Route: 048
     Dates: start: 20171103, end: 20171122
  26. DEPREXETIN [Interacting]
     Active Substance: FLUOXETINE HYDROCHLORIDE
     Indication: DIABETES MELLITUS

REACTIONS (11)
  - Dry mouth [Unknown]
  - Nightmare [Recovered/Resolved]
  - Initial insomnia [Recovered/Resolved]
  - Poor quality sleep [Recovered/Resolved]
  - Somnolence [Recovered/Resolved]
  - Blood glucose fluctuation [Recovered/Resolved]
  - Drug interaction [Unknown]
  - Impaired self-care [Unknown]
  - Abnormal dreams [Recovered/Resolved]
  - Off label use [Recovered/Resolved]
  - Sleep disorder [Recovered/Resolved]
